FAERS Safety Report 6142355-6 (Version None)
Quarter: 2009Q2

REPORT INFORMATION
  Report Type: 
  Country: None (occurrence: None)
  Receive Date: 20090403
  Receipt Date: 20090327
  Transmission Date: 20091009
  Serious: Yes (Hospitalization)
  Sender: FDA-Public Use
  Company Number: US-JNJFOC-20090307147

PATIENT
  Sex: Female

DRUGS (10)
  1. FENTANYL TRANSDERMAL SYSTEM [Suspect]
     Route: 062
  2. FENTANYL TRANSDERMAL SYSTEM [Suspect]
     Indication: PAIN
     Route: 062
  3. TRAMADOL [Concomitant]
     Route: 048
  4. REGLAN [Concomitant]
     Route: 048
  5. LISINOPRIL [Concomitant]
     Route: 048
  6. MIRALAX [Concomitant]
     Route: 048
  7. PRILOSEC [Concomitant]
     Route: 048
  8. ZOLOFT [Concomitant]
     Route: 048
  9. ESTRADIOL [Concomitant]
     Route: 048
  10. ALBUTEROL [Concomitant]
     Route: 055

REACTIONS (3)
  - PAIN [None]
  - PRODUCT QUALITY ISSUE [None]
  - WRONG TECHNIQUE IN DRUG USAGE PROCESS [None]
